FAERS Safety Report 10186831 (Version 2)
Quarter: 2014Q3

REPORT INFORMATION
  Report Type: Spontaneous
  Country: DE (occurrence: DE)
  Receive Date: 20140522
  Receipt Date: 20140717
  Transmission Date: 20150326
  Serious: Yes (Hospitalization)
  Sender: FDA-Public Use
  Company Number: DE-UCBSA-120969

PATIENT
  Sex: Male

DRUGS (4)
  1. LAMOTRIGINE. [Concomitant]
     Active Substance: LAMOTRIGINE
  2. PRIMIDONE. [Concomitant]
     Active Substance: PRIMIDONE
  3. LEVETIRACETAM. [Suspect]
     Active Substance: LEVETIRACETAM
  4. VIMPAT [Suspect]
     Active Substance: LACOSAMIDE
     Dosage: 2 X 200 MG

REACTIONS (1)
  - Gastritis erosive [Unknown]
